FAERS Safety Report 23658341 (Version 1)
Quarter: 2024Q1

REPORT INFORMATION
  Report Type: Spontaneous
  Country: US (occurrence: US)
  Receive Date: 20240321
  Receipt Date: 20240321
  Transmission Date: 20240410
  Serious: Yes (Death, Other)
  Sender: FDA-Public Use
  Company Number: US-BRISTOL-MYERS SQUIBB COMPANY-2024-044620

PATIENT
  Age: 76 Year
  Sex: Female

DRUGS (5)
  1. ORENCIA [Suspect]
     Active Substance: ABATACEPT
     Indication: Rheumatoid arthritis
     Route: 042
     Dates: start: 202309
  2. SODIUM CHLORIDE [Concomitant]
     Active Substance: SODIUM CHLORIDE
     Dosage: 100ML/BAG
  3. SODIUM CHLORIDE [Concomitant]
     Active Substance: SODIUM CHLORIDE
     Dosage: FLUSH
  4. STERILE WATER [Concomitant]
     Active Substance: WATER
     Dosage: 10 ML/VL
  5. PROLIA [Concomitant]
     Active Substance: DENOSUMAB
     Dosage: PFS

REACTIONS (1)
  - Death [Fatal]

NARRATIVE: CASE EVENT DATE: 20240313
